FAERS Safety Report 19808388 (Version 1)
Quarter: 2021Q3

REPORT INFORMATION
  Report Type: Spontaneous
  Country: FR (occurrence: FR)
  Receive Date: 20210909
  Receipt Date: 20210909
  Transmission Date: 20211014
  Serious: Yes (Other)
  Sender: FDA-Public Use
  Company Number: FR-MICRO LABS LIMITED-ML2021-02231

PATIENT
  Sex: Male
  Weight: 1.38 kg

DRUGS (10)
  1. VANCOMYCIN [Concomitant]
     Active Substance: VANCOMYCIN
  2. PIPERACILLIN AND TAZOBACTAM [Concomitant]
     Active Substance: PIPERACILLIN SODIUM\TAZOBACTAM SODIUM
  3. CAFFEINE CITRATE. [Suspect]
     Active Substance: CAFFEINE CITRATE
  4. INSULIN [Concomitant]
     Active Substance: INSULIN NOS
  5. DOPAMINE [Concomitant]
     Active Substance: DOPAMINE HYDROCHLORIDE
  6. ACETAMINOPHEN. [Concomitant]
     Active Substance: ACETAMINOPHEN
  7. VANCOMYCIN [Concomitant]
     Active Substance: VANCOMYCIN
  8. HYDROCORTISONE SUCCINATE [Concomitant]
  9. PROSTIN [Concomitant]
     Active Substance: ALPROSTADIL
  10. FUROSEMIDE. [Concomitant]
     Active Substance: FUROSEMIDE

REACTIONS (2)
  - Skin necrosis [Unknown]
  - Endothelial dysfunction [Unknown]
